FAERS Safety Report 8975537 (Version 2)
Quarter: 2013Q1

REPORT INFORMATION
  Report Type: Spontaneous
  Country: US (occurrence: US)
  Receive Date: 20121219
  Receipt Date: 20130117
  Transmission Date: 20140127
  Serious: No
  Sender: FDA-Public Use
  Company Number: US-PFIZER INC-2012318323

PATIENT
  Age: 72 Year
  Sex: Female

DRUGS (5)
  1. TOVIAZ [Suspect]
     Dosage: 4 MG, DAILY
  2. TOVIAZ [Suspect]
     Dosage: 0.4 MG, DAILY
     Route: 048
     Dates: start: 20120925, end: 20120928
  3. LOTREL [Concomitant]
     Dosage: 5/10, UNK
  4. HYDROCHLOROTHIAZIDE [Concomitant]
     Dosage: 25 MG, UNK
  5. NORCO [Concomitant]
     Dosage: 7.5 / 325, UNK

REACTIONS (2)
  - Swelling face [Recovered/Resolved]
  - Eye pruritus [Recovered/Resolved]
